FAERS Safety Report 22171311 (Version 1)
Quarter: 2023Q2

REPORT INFORMATION
  Report Type: Spontaneous
  Country: JP (occurrence: JP)
  Receive Date: 20230404
  Receipt Date: 20230404
  Transmission Date: 20230721
  Serious: Yes (Death)
  Sender: FDA-Public Use
  Company Number: JP-PFIZER INC-PV202300056620

PATIENT
  Age: 30 Year
  Sex: Female

DRUGS (11)
  1. PACLITAXEL [Suspect]
     Active Substance: PACLITAXEL
     Indication: Breast angiosarcoma metastatic
     Dosage: 75 MG/M2, WEEKLY (FOR 12 CYCLES)
     Route: 042
  2. ADRIAMYCIN [Suspect]
     Active Substance: DOXORUBICIN HYDROCHLORIDE
     Indication: Breast angiosarcoma metastatic
     Dosage: 60 MG/M2
  3. ADRIAMYCIN [Suspect]
     Active Substance: DOXORUBICIN HYDROCHLORIDE
     Dosage: 20 MG
  4. CISPLATIN [Suspect]
     Active Substance: CISPLATIN
     Indication: Breast angiosarcoma metastatic
     Dosage: 20 MG
  5. DOCETAXEL [Suspect]
     Active Substance: DOCETAXEL
     Indication: Breast angiosarcoma metastatic
     Dosage: 20 MG
  6. FLUOROURACIL [Suspect]
     Active Substance: FLUOROURACIL
     Indication: Breast angiosarcoma metastatic
     Dosage: 250 MG
  7. CARBOPLATIN [Suspect]
     Active Substance: CARBOPLATIN
     Indication: Breast angiosarcoma metastatic
     Dosage: 30 MG
  8. BEVACIZUMAB [Suspect]
     Active Substance: BEVACIZUMAB
     Indication: Breast angiosarcoma metastatic
     Dosage: 100 MG
  9. BEVACIZUMAB [Suspect]
     Active Substance: BEVACIZUMAB
     Dosage: 200 MG
  10. EPIRUBICIN HYDROCHLORIDE [Suspect]
     Active Substance: EPIRUBICIN HYDROCHLORIDE
     Indication: Breast angiosarcoma metastatic
     Dosage: 20 MG
  11. ERIBULIN [Suspect]
     Active Substance: ERIBULIN
     Indication: Breast angiosarcoma metastatic
     Dosage: 1 MG/M2
     Route: 042

REACTIONS (1)
  - Neoplasm progression [Fatal]
